FAERS Safety Report 19816458 (Version 1)
Quarter: 2021Q3

REPORT INFORMATION
  Report Type: Spontaneous
  Country: DE (occurrence: DE)
  Receive Date: 20210909
  Receipt Date: 20210909
  Transmission Date: 20211014
  Serious: Yes (Other)
  Sender: FDA-Public Use
  Company Number: DE-SUNOVION-2021SUN003497

PATIENT

DRUGS (1)
  1. LUNESTA [Suspect]
     Active Substance: ESZOPICLONE
     Dosage: 1 MG, QD
     Route: 065
     Dates: start: 202108

REACTIONS (2)
  - Amnesia [Recovered/Resolved]
  - Altered state of consciousness [Recovered/Resolved]
